FAERS Safety Report 25183738 (Version 1)
Quarter: 2025Q2

REPORT INFORMATION
  Report Type: Spontaneous
  Country: US (occurrence: None)
  Receive Date: 20250409
  Receipt Date: 20250409
  Transmission Date: 20250717
  Serious: No
  Sender: FDA-CTU
  Company Number: None

PATIENT
  Age: 25 Year
  Sex: Female
  Weight: 51.75 kg

DRUGS (3)
  1. MONISTAT 3 [Suspect]
     Active Substance: MICONAZOLE NITRATE
     Indication: Vulvovaginal mycotic infection
  2. NORETHINDRONE [Concomitant]
     Active Substance: NORETHINDRONE
  3. VITAMIN C [Concomitant]
     Active Substance: ASCORBIC ACID

REACTIONS (2)
  - Vulvovaginal burning sensation [None]
  - Vulvovaginal pruritus [None]

NARRATIVE: CASE EVENT DATE: 20250407
